FAERS Safety Report 8521704-5 (Version None)
Quarter: 2012Q3

REPORT INFORMATION
  Report Type: 
  Country: None (occurrence: None)
  Receive Date: 20120719
  Receipt Date: 20120717
  Transmission Date: 20120928
  Serious: No
  Sender: FDA-Public Use
  Company Number: PHHY2012BR036229

PATIENT
  Age: 52 Year
  Sex: Female
  Weight: 58 kg

DRUGS (4)
  1. CALCIUM CARBONATE (NUTRICALCIO) [Concomitant]
     Indication: BONE DISORDER
     Dosage: 1 DF, DAILY
     Route: 048
  2. BETAHISTINE HYDROCHLORIDE (LABIRIN) [Concomitant]
     Indication: LABYRINTHITIS
     Dosage: 16 MG, PRN
     Route: 048
  3. DIOVAN [Suspect]
     Indication: HYPERTENSION
     Dosage: 1 DF, DAILY
  4. PAROXETINE HYDROCHLORIDE (PONDERA) [Concomitant]
     Indication: DEPRESSION
     Dosage: 15 MG, DAILY
     Route: 048

REACTIONS (3)
  - BLOOD PRESSURE INCREASED [None]
  - MALAISE [None]
  - DIZZINESS [None]
